FAERS Safety Report 21599718 (Version 2)
Quarter: 2023Q1

REPORT INFORMATION
  Report Type: Spontaneous
  Country: US (occurrence: US)
  Receive Date: 20221115
  Receipt Date: 20230111
  Transmission Date: 20230418
  Serious: No
  Sender: FDA-Public Use
  Company Number: US-ELI_LILLY_AND_COMPANY-US202210012552

PATIENT
  Sex: Female

DRUGS (4)
  1. MOUNJARO [Suspect]
     Active Substance: TIRZEPATIDE
     Indication: Weight decreased
     Dosage: 15 MG, UNKNOWN
     Route: 065
  2. MOUNJARO [Suspect]
     Active Substance: TIRZEPATIDE
     Indication: Weight decreased
     Dosage: 15 MG, UNKNOWN
     Route: 065
  3. MOUNJARO [Suspect]
     Active Substance: TIRZEPATIDE
     Dosage: 15 MG, UNKNOWN
     Route: 065
     Dates: start: 202207
  4. MOUNJARO [Suspect]
     Active Substance: TIRZEPATIDE
     Dosage: 15 MG, UNKNOWN
     Route: 065
     Dates: start: 202207

REACTIONS (5)
  - Weight decreased [Unknown]
  - Injury associated with device [Unknown]
  - Wrong technique in product usage process [Unknown]
  - Off label use [Unknown]
  - Injection site haemorrhage [Unknown]
